FAERS Safety Report 6212653-6 (Version None)
Quarter: 2009Q2

REPORT INFORMATION
  Report Type: 
  Country: None (occurrence: None)
  Receive Date: 20090603
  Receipt Date: 20090526
  Transmission Date: 20091009
  Serious: Yes (Hospitalization, Other)
  Sender: FDA-Public Use
  Company Number: US-AMGEN-QUU348611

PATIENT
  Sex: Female

DRUGS (2)
  1. ENBREL [Suspect]
     Indication: RHEUMATOID ARTHRITIS
     Route: 058
     Dates: start: 20061002
  2. METHOTREXATE [Concomitant]
     Dates: start: 20020101

REACTIONS (3)
  - BREAST CANCER [None]
  - INJECTION SITE PAIN [None]
  - PRECANCEROUS CELLS PRESENT [None]
